FAERS Safety Report 6592261-8 (Version None)
Quarter: 2010Q1

REPORT INFORMATION
  Report Type: 
  Country: None (occurrence: None)
  Receive Date: 20100221
  Receipt Date: 20090918
  Transmission Date: 20100710
  Serious: No
  Sender: FDA-Public Use
  Company Number: US-ALLERGAN-0913124US

PATIENT
  Sex: Female

DRUGS (1)
  1. BOTOX [Suspect]
     Indication: PARKINSON'S DISEASE
     Dosage: UNK
     Route: 030
     Dates: start: 20090917, end: 20090917

REACTIONS (1)
  - PYREXIA [None]
